FAERS Safety Report 9402070 (Version 1)
Quarter: 2013Q3

REPORT INFORMATION
  Report Type: Spontaneous
  Country: BR (occurrence: BR)
  Receive Date: 20130716
  Receipt Date: 20130716
  Transmission Date: 20140515
  Serious: Yes (Hospitalization, Other)
  Sender: FDA-Public Use
  Company Number: PHHY2013BR075010

PATIENT
  Age: 57 Year
  Sex: Female
  Weight: 74 kg

DRUGS (10)
  1. DIOVAN [Suspect]
     Indication: HYPERTENSION
     Dosage: 1 DF, DAILY
     Route: 048
  2. APRESOLIN [Suspect]
     Indication: HYPERTENSION
     Dosage: 2 DF(50MG), DAILY
     Route: 048
  3. ATENSINA [Suspect]
     Indication: HYPERTENSION
     Dosage: 1.5 DF(100MG), BID (ONE AND HALF TABLET IN MORNING AND ONE HALF TABLET AT NIGHT)
     Route: 048
  4. ATENSINA [Suspect]
     Dosage: 3 DF(100MG), DAILY
     Route: 048
  5. AMIODARONE [Concomitant]
     Indication: ARRHYTHMIA
     Dosage: 1 DF(200MG)
     Route: 048
  6. FLUOXETINE [Concomitant]
     Indication: DEPRESSION
     Dosage: 1 DF(20MG), DAILY
     Route: 048
  7. GLIMEPIRIDE [Concomitant]
     Indication: DIABETES MELLITUS
     Dosage: 1 DF (1MG), DAILY
     Route: 048
  8. ALPRAZOLAM [Concomitant]
     Indication: SLEEP DISORDER
     Dosage: 1 DF(0.5MG), DAILY
     Route: 048
  9. ADDERA D3 [Concomitant]
     Indication: VITAMIN D DEFICIENCY
     Dosage: 12 DF, DAILY
     Route: 048
  10. BACLON [Concomitant]
     Indication: NERVE INJURY
     Dosage: 2 DF(10MG), DAILY
     Route: 048

REACTIONS (6)
  - Cerebrovascular accident [Recovering/Resolving]
  - Nephrolithiasis [Not Recovered/Not Resolved]
  - Renal impairment [Unknown]
  - Hypovitaminosis [Not Recovered/Not Resolved]
  - Dry mouth [Not Recovered/Not Resolved]
  - Dry throat [Not Recovered/Not Resolved]
